FAERS Safety Report 5193860-0 (Version None)
Quarter: 2006Q4

REPORT INFORMATION
  Report Type: 
  Country: None (occurrence: None)
  Receive Date: 20061228
  Receipt Date: 20060327
  Transmission Date: 20070319
  Serious: Yes (Death)
  Sender: FDA-Public Use
  Company Number: US-ABBOTT-06P-163-0329248-02

PATIENT
  Sex: Female
  Weight: 121 kg

DRUGS (20)
  1. HUMIRA [Suspect]
     Indication: PSORIATIC ARTHROPATHY
     Route: 058
     Dates: start: 20031217, end: 20060321
  2. VENTOLIN [Concomitant]
     Indication: SUBCUTANEOUS ABSCESS
     Dates: start: 20060316, end: 20060316
  3. METOCLOPRAMIDE [Concomitant]
     Indication: SUBCUTANEOUS ABSCESS
     Dates: start: 20060316, end: 20060316
  4. ONDANSETRON HCL [Concomitant]
     Indication: SUBCUTANEOUS ABSCESS
     Dates: start: 20060316, end: 20060316
  5. DEXAMETHASONE [Concomitant]
     Indication: SUBCUTANEOUS ABSCESS
     Dates: start: 20060316, end: 20060316
  6. MORPHINE [Concomitant]
     Indication: SUBCUTANEOUS ABSCESS
     Dates: start: 20060319, end: 20060320
  7. MORPHINE [Concomitant]
     Dates: start: 20060320, end: 20060320
  8. MORPHINE [Concomitant]
     Dates: start: 20060322, end: 20060322
  9. LORAZEPAM [Concomitant]
     Indication: SUBCUTANEOUS ABSCESS
     Dates: start: 20060319, end: 20060320
  10. PROMETHAZINE [Concomitant]
     Indication: SUBCUTANEOUS ABSCESS
     Dates: start: 20060320, end: 20060320
  11. PROMETHAZINE [Concomitant]
     Dates: start: 20060319, end: 20060319
  12. VICODIN [Concomitant]
     Indication: SUBCUTANEOUS ABSCESS
     Dates: start: 20060322, end: 20060322
  13. VICODIN [Concomitant]
     Dates: start: 20060322, end: 20060323
  14. UNACID [Concomitant]
     Indication: SUBCUTANEOUS ABSCESS
     Dates: start: 20060320, end: 20060323
  15. PANTOPRAZOLE SODIUM [Concomitant]
     Indication: GASTROOESOPHAGEAL REFLUX DISEASE
     Dates: start: 20030320, end: 20060323
  16. DOCUSATE SODIUM [Concomitant]
     Indication: SUBCUTANEOUS ABSCESS
     Dates: start: 20060320, end: 20060323
  17. CLOTRIMAZOLE [Concomitant]
     Indication: SUBCUTANEOUS ABSCESS
     Dates: start: 20060321, end: 20060321
  18. CLOTRIMAZOLE [Concomitant]
     Dates: start: 20060322, end: 20060323
  19. FLUCAMAZOLE [Concomitant]
     Indication: SUBCUTANEOUS ABSCESS
     Dates: start: 20060322, end: 20060322
  20. LACTULOSE [Concomitant]
     Indication: SUBCUTANEOUS ABSCESS
     Dates: start: 20060322, end: 20060322

REACTIONS (1)
  - MYOCARDIAL INFARCTION [None]
